FAERS Safety Report 20821967 (Version 1)
Quarter: 2022Q2

REPORT INFORMATION
  Report Type: Spontaneous
  Country: US (occurrence: None)
  Receive Date: 20220512
  Receipt Date: 20220512
  Transmission Date: 20220721
  Serious: Yes (Other)
  Sender: FDA-Public Use
  Company Number: None

PATIENT
  Age: 75 Year
  Sex: Male
  Weight: 85.1 kg

DRUGS (9)
  1. JARDIANCE [Suspect]
     Active Substance: EMPAGLIFLOZIN
     Indication: Type 2 diabetes mellitus
     Dosage: FREQUENCY : DAILY;?
     Route: 048
     Dates: start: 20220423, end: 20220425
  2. METFORMIN [Concomitant]
     Active Substance: METFORMIN HYDROCHLORIDE
     Dates: start: 20151014
  3. GLIMEPIRIDE [Concomitant]
     Active Substance: GLIMEPIRIDE
     Dates: start: 20190709
  4. LOSARTAN [Concomitant]
     Active Substance: LOSARTAN
     Dates: start: 20200925
  5. ATORVASTATIN [Concomitant]
     Active Substance: ATORVASTATIN
     Dates: start: 20010914
  6. DULOXETINE [Concomitant]
     Active Substance: DULOXETINE
     Dates: start: 20161212
  7. HYDROCHLOROTHIAZIDE [Concomitant]
     Active Substance: HYDROCHLOROTHIAZIDE
     Dates: start: 20050419
  8. GABAPENTIN [Concomitant]
     Active Substance: GABAPENTIN
     Dates: start: 20130626
  9. BUSPIRONE [Concomitant]
     Active Substance: BUSPIRONE HYDROCHLORIDE
     Dates: start: 20180518

REACTIONS (4)
  - Rash pruritic [None]
  - Rash [None]
  - Rash [None]
  - Therapy interrupted [None]

NARRATIVE: CASE EVENT DATE: 20220425
